FAERS Safety Report 20551918 (Version 1)
Quarter: 2022Q1

REPORT INFORMATION
  Report Type: Spontaneous
  Country: NO (occurrence: NO)
  Receive Date: 20220304
  Receipt Date: 20220304
  Transmission Date: 20220423
  Serious: Yes (Other)
  Sender: FDA-Public Use
  Company Number: None

PATIENT
  Age: 41 Year
  Sex: Female

DRUGS (3)
  1. KYLEENA [Suspect]
     Active Substance: LEVONORGESTREL
     Indication: Endometriosis
     Dosage: 17.5?G/DAY
     Route: 015
     Dates: start: 20211026, end: 20211216
  2. LEVOTHYROXINE SODIUM [Concomitant]
     Active Substance: LEVOTHYROXINE SODIUM
     Indication: Hypothyroidism
     Dosage: 50 ?G, QD
  3. FOLIC ACID [Concomitant]
     Active Substance: FOLIC ACID
     Dosage: UNK

REACTIONS (19)
  - Somnolence [Unknown]
  - Mood swings [Unknown]
  - Crying [Unknown]
  - Back pain [Recovering/Resolving]
  - Asthenia [Unknown]
  - Abdominal pain lower [Unknown]
  - Respiratory rate increased [Unknown]
  - Depression [Recovering/Resolving]
  - Menstrual disorder [Unknown]
  - Pelvic pain [Recovering/Resolving]
  - Suicidal ideation [Unknown]
  - Dizziness [Unknown]
  - Vomiting [Unknown]
  - Pain in extremity [Unknown]
  - Heavy menstrual bleeding [Unknown]
  - Abdominal pain lower [Recovering/Resolving]
  - Headache [Unknown]
  - Vaginal haemorrhage [Recovering/Resolving]
  - Nausea [Unknown]

NARRATIVE: CASE EVENT DATE: 20211026
